FAERS Safety Report 25571531 (Version 1)
Quarter: 2025Q3

REPORT INFORMATION
  Report Type: Spontaneous
  Country: US (occurrence: None)
  Receive Date: 20250716
  Receipt Date: 20250716
  Transmission Date: 20251021
  Serious: Yes (Hospitalization)
  Sender: FDA-CTU
  Company Number: None

PATIENT
  Sex: Male

DRUGS (10)
  1. LENALIDOMIDE [Suspect]
     Active Substance: LENALIDOMIDE
     Indication: Plasma cell myeloma
     Dosage: FREQUENCY : DAILY;?
     Route: 048
  2. ACYCLOVIR TAB 800MG [Concomitant]
  3. ASPIRIN TAB 325MG EC [Concomitant]
  4. DULOXETINE CAP 60MG DR [Concomitant]
  5. JANUVIA TAB100MG [Concomitant]
  6. LIPITOR TAB 40MG [Concomitant]
  7. LOSARTAN POT TAB 25MG [Concomitant]
  8. MULTIVITAMIN TAB ADLT 50+ [Concomitant]
  9. TYLENOL TAB 325MG [Concomitant]
  10. XGEVA [Concomitant]
     Active Substance: DENOSUMAB

REACTIONS (2)
  - Fall [None]
  - Intentional dose omission [None]
